FAERS Safety Report 6218587-5 (Version None)
Quarter: 2009Q2

REPORT INFORMATION
  Report Type: 
  Country: None (occurrence: None)
  Receive Date: 20090608
  Receipt Date: 20090602
  Transmission Date: 20091009
  Serious: Yes (Other)
  Sender: FDA-Public Use
  Company Number: US-JNJCH-2009014376

PATIENT
  Age: 57 Year
  Sex: Female
  Weight: 93.4 kg

DRUGS (1)
  1. LISTERINE WHITENING PRE-BRUSH RINSE [Suspect]
     Indication: DENTAL CARE
     Dosage: TEXT:UNSPECIFIED ONCE
     Route: 048
     Dates: start: 20090521, end: 20090521

REACTIONS (7)
  - ABDOMINAL DISCOMFORT [None]
  - ANAPHYLACTIC SHOCK [None]
  - CHEILITIS [None]
  - DYSPNOEA [None]
  - GLOSSITIS [None]
  - LIP SWELLING [None]
  - SWOLLEN TONGUE [None]
